FAERS Safety Report 7225383-9 (Version None)
Quarter: 2011Q1

REPORT INFORMATION
  Report Type: 
  Country: None (occurrence: None)
  Receive Date: 20110103
  Receipt Date: 20101215
  Transmission Date: 20110831
  Serious: Yes (Hospitalization)
  Sender: FDA-Public Use
  Company Number: 023885

PATIENT
  Sex: Female

DRUGS (7)
  1. CIMZIA [Suspect]
     Indication: CROHN'S DISEASE
     Dosage: SUBCUTANEOUS
     Route: 058
  2. AZATHIOPRINE [Suspect]
     Indication: CROHN'S DISEASE
  3. ANTIBIOTICS [Concomitant]
  4. INFLIXIMAB [Suspect]
     Indication: CROHN'S DISEASE
     Dosage: 4 INFUSIONS PRIOR TO TREAT BASELINEE, 23 INFUSIONS, 5 MG/KG, 5 MG/KG
     Dates: start: 20070212
  5. INFLIXIMAB [Suspect]
     Indication: CROHN'S DISEASE
     Dosage: 4 INFUSIONS PRIOR TO TREAT BASELINEE, 23 INFUSIONS, 5 MG/KG, 5 MG/KG
     Dates: start: 20020718, end: 20070212
  6. PREDNISONE [Suspect]
     Indication: CROHN'S DISEASE
  7. ANALGESICS [Suspect]
     Indication: CROHN'S DISEASE

REACTIONS (1)
  - ABDOMINAL ABSCESS [None]
